FAERS Safety Report 10649906 (Version 1)
Quarter: 2014Q4

REPORT INFORMATION
  Report Type: Spontaneous
  Country: US (occurrence: None)
  Receive Date: 20141205
  Receipt Date: 20141205
  Transmission Date: 20150529
  Serious: No
  Sender: FDA-Public Use
  Company Number: 163-POMAL-14090073

PATIENT
  Age: 74 Year
  Sex: Male

DRUGS (9)
  1. ASPIRIN LOW DOSE (ACETYLSALICYLIC ACID) (UNKNOWN) [Concomitant]
  2. MECLIZINE HCL (MECLOZINE HYDROCHLORIDE) (UNKNOWN) [Concomitant]
  3. DOXAZOSIN MESYLATE (DOXAZOSIN MESILATE) (UNKNOWN) [Concomitant]
  4. BACLOFEN (BACLOFEN) (UNKNOWN) [Concomitant]
  5. LEVOTHYROXINE SODIUM (LEVOTHYROXINE SODIUM) (UNKNOWN) [Concomitant]
  6. SIMVASTATIN (SIMVASTATIN) (UNKNOWN) [Concomitant]
     Active Substance: SIMVASTATIN
  7. TRAMADO HCL (TRAMADOL HYDROCHLORIDE) (UNKNOWN) [Concomitant]
  8. POMALYST [Suspect]
     Active Substance: POMALIDOMIDE
     Indication: PLASMA CELL MYELOMA
     Dosage: 4 MG, 21 IN 21 D, PO
     Route: 048
     Dates: start: 20140807
  9. LISINOPRIL (LISINOPRIL) (UNKNOWN) (LISINOPRIL) [Concomitant]
     Active Substance: LISINOPRIL

REACTIONS (4)
  - Confusional state [None]
  - Nausea [None]
  - Asthenia [None]
  - Lip exfoliation [None]
